FAERS Safety Report 8027155-4 (Version None)
Quarter: 2012Q1

REPORT INFORMATION
  Report Type: 
  Country: None (occurrence: None)
  Receive Date: 20120106
  Receipt Date: 20120105
  Transmission Date: 20120608
  Serious: Yes (Death)
  Sender: FDA-Public Use
  Company Number: PHEH2012US000665

PATIENT
  Sex: Male

DRUGS (1)
  1. EXJADE [Suspect]
     Indication: ILL-DEFINED DISORDER
     Dosage: 1000 MG, DAILY
     Route: 048
     Dates: start: 20111117

REACTIONS (1)
  - DEATH [None]
